FAERS Safety Report 19506756 (Version 1)
Quarter: 2021Q3

REPORT INFORMATION
  Report Type: Spontaneous
  Country: US (occurrence: US)
  Receive Date: 20210708
  Receipt Date: 20210708
  Transmission Date: 20211014
  Serious: Yes (Hospitalization)
  Sender: FDA-Public Use
  Company Number: None

PATIENT
  Age: 16 Year
  Sex: Female

DRUGS (2)
  1. AFINITOR DISPERZ [Suspect]
     Active Substance: EVEROLIMUS
     Indication: BRAIN NEOPLASM
     Dosage: ?          OTHER ROUTE:G?TUBE ?          OTHER ROUTE:G?TUBE DISSOLVE 2 TABLETS IN 10 MLS WATER AND GIVE VIA G?TUBE EVERY DAY AS DIRECTED (ADD UP TO 5 MG TABLETS FOR TOTAL DAILY DOSE OF 13 MG DAILY)??
     Dates: start: 20200318
  2. AFINITOR DISPERZ [Suspect]
     Active Substance: EVEROLIMUS
     Indication: BRAIN NEOPLASM
     Dosage: ?          OTHER ROUTE:G?TUBE DISSOLVE 2 TABLETS IN 10 MLS WATER AND GIVE VIA G?TUBE EVERY DAY AS DIRECTED (ADD UP TO 5 MG TABLETS FOR TOTAL DAILY DOSE OF 13 MG DAILY)?
     Dates: start: 20200318

REACTIONS (1)
  - Hospitalisation [None]

NARRATIVE: CASE EVENT DATE: 20210705
